FAERS Safety Report 5530912-7 (Version None)
Quarter: 2007Q4

REPORT INFORMATION
  Report Type: 
  Country: None (occurrence: None)
  Receive Date: 20071130
  Receipt Date: 20071123
  Transmission Date: 20080405
  Serious: Yes (Other)
  Sender: FDA-Public Use
  Company Number: DE-ABBOTT-07P-062-0425665-00

PATIENT
  Age: 70 Year
  Sex: Female
  Weight: 56 kg

DRUGS (4)
  1. HUMIRA [Suspect]
     Indication: POLYARTHRITIS
     Route: 058
     Dates: start: 20070801, end: 20071111
  2. HUMIRA [Suspect]
     Indication: RHEUMATOID ARTHRITIS
  3. SULFASALAZINE [Concomitant]
     Indication: POLYARTHRITIS
     Dosage: 2000-1000 MG (TOTAL DAILY DOSE)
     Route: 048
     Dates: start: 20040101
  4. SULFASALAZINE [Concomitant]
     Indication: RHEUMATOID ARTHRITIS

REACTIONS (10)
  - BRONCHITIS [None]
  - DEAFNESS [None]
  - GENERAL PHYSICAL HEALTH DETERIORATION [None]
  - LABYRINTHITIS [None]
  - MIDDLE EAR EFFUSION [None]
  - OTITIS MEDIA [None]
  - PNEUMONIA [None]
  - PYREXIA [None]
  - UPPER RESPIRATORY TRACT INFECTION [None]
  - WEIGHT DECREASED [None]
